FAERS Safety Report 6259722-2 (Version None)
Quarter: 2009Q3

REPORT INFORMATION
  Report Type: 
  Country: None (occurrence: None)
  Receive Date: 20090701
  Receipt Date: 20090617
  Transmission Date: 20100115
  Serious: Yes (Death)
  Sender: FDA-Public Use
  Company Number: B0580727A

PATIENT
  Sex: 0

DRUGS (5)
  1. MELPHALAN (FORMULATION UNKNOWN) (GENERIC) (MELPHALAN) [Suspect]
     Indication: ACUTE MYELOID LEUKAEMIA
     Dosage: INTRAVENOUS
     Route: 042
  2. CLOFARABINE (FORMULATION UNKNOWN) (CLOFARABINE) [Suspect]
     Indication: ACUTE MYELOID LEUKAEMIA
     Dosage: INTRAVENOUS
     Route: 042
  3. MYCOPHENOLATE MOFETIL [Concomitant]
  4. TACROLIMUS [Concomitant]
  5. SIROLIMUS [Concomitant]

REACTIONS (3)
  - HEPATOTOXICITY [None]
  - INFECTION [None]
  - NEPHROPATHY TOXIC [None]
